FAERS Safety Report 11932779 (Version 3)
Quarter: 2016Q4

REPORT INFORMATION
  Report Type: Report from Study
  Country: US (occurrence: US)
  Receive Date: 20160120
  Receipt Date: 20161018
  Transmission Date: 20170206
  Serious: Yes (Hospitalization, Other)
  Sender: FDA-Public Use
  Company Number: US-ACTELION-A-NJ2016-130041

PATIENT
  Age: 92 Year
  Sex: Female

DRUGS (3)
  1. WARFARIN [Concomitant]
     Active Substance: WARFARIN
  2. OPSUMIT [Suspect]
     Active Substance: MACITENTAN
     Indication: PULMONARY ARTERIAL HYPERTENSION
     Dosage: 10 MG, QD
     Route: 048
     Dates: start: 20140130
  3. TYVASO [Concomitant]
     Active Substance: TREPROSTINIL

REACTIONS (7)
  - Carcinoid tumour of the stomach [Unknown]
  - Haemoglobin decreased [Unknown]
  - Nausea [Unknown]
  - Vomiting [Unknown]
  - Hip fracture [Unknown]
  - Fall [Unknown]
  - Osteoporosis [Unknown]

NARRATIVE: CASE EVENT DATE: 20160103
